FAERS Safety Report 13655299 (Version 5)
Quarter: 2018Q4

REPORT INFORMATION
  Report Type: Report from Study
  Country: CA (occurrence: CA)
  Receive Date: 20170615
  Receipt Date: 20181106
  Transmission Date: 20190204
  Serious: Yes (Other)
  Sender: FDA-Public Use
  Company Number: CA-ROCHE-1680363

PATIENT
  Age: 77 Year
  Sex: Male
  Weight: 70.5 kg

DRUGS (15)
  1. ESBRIET [Suspect]
     Active Substance: PIRFENIDONE
     Route: 048
     Dates: start: 201603
  2. METOPROLOL. [Concomitant]
     Active Substance: METOPROLOL
  3. ESBRIET [Suspect]
     Active Substance: PIRFENIDONE
     Route: 048
     Dates: start: 20151216
  4. METFORMIN [Concomitant]
     Active Substance: METFORMIN HYDROCHLORIDE
  5. CANGRELOR [Concomitant]
     Active Substance: CANGRELOR
  6. ESBRIET [Suspect]
     Active Substance: PIRFENIDONE
     Indication: IDIOPATHIC PULMONARY FIBROSIS
     Route: 048
     Dates: start: 20151202
  7. ASA [Concomitant]
     Active Substance: ASPIRIN
     Route: 065
  8. ESBRIET [Suspect]
     Active Substance: PIRFENIDONE
     Route: 048
     Dates: start: 20151209
  9. ESBRIET [Suspect]
     Active Substance: PIRFENIDONE
     Route: 048
  10. ESBRIET [Suspect]
     Active Substance: PIRFENIDONE
     Route: 048
     Dates: start: 20170228
  11. TECTA [Concomitant]
     Active Substance: PANTOPRAZOLE MAGNESIUM
  12. TAMSULOSIN [Concomitant]
     Active Substance: TAMSULOSIN
  13. ESBRIET [Suspect]
     Active Substance: PIRFENIDONE
     Route: 048
  14. ESBRIET [Suspect]
     Active Substance: PIRFENIDONE
     Route: 048
     Dates: start: 201702
  15. ESBRIET [Suspect]
     Active Substance: PIRFENIDONE
     Route: 048
     Dates: start: 201705

REACTIONS (20)
  - Cough [Not Recovered/Not Resolved]
  - Feeding disorder [Unknown]
  - Eructation [Recovered/Resolved]
  - Gait disturbance [Not Recovered/Not Resolved]
  - Dizziness [Recovering/Resolving]
  - Insomnia [Recovered/Resolved]
  - Oxygen saturation decreased [Unknown]
  - Flatulence [Unknown]
  - Treatment noncompliance [Unknown]
  - Myalgia [Recovered/Resolved]
  - Fatigue [Not Recovered/Not Resolved]
  - Productive cough [Recovered/Resolved]
  - Hyperhidrosis [Unknown]
  - Visual impairment [Recovered/Resolved]
  - Abdominal discomfort [Unknown]
  - Cough [Not Recovered/Not Resolved]
  - Increased viscosity of bronchial secretion [Not Recovered/Not Resolved]
  - Constipation [Unknown]
  - Pulmonary function test decreased [Unknown]
  - Decreased appetite [Not Recovered/Not Resolved]

NARRATIVE: CASE EVENT DATE: 2016
